FAERS Safety Report 5816240-0 (Version None)
Quarter: 2008Q3

REPORT INFORMATION
  Report Type: 
  Country: None (occurrence: None)
  Receive Date: 20080717
  Receipt Date: 20080717
  Transmission Date: 20090109
  Serious: Yes (Life-Threatening, Hospitalization)
  Sender: FDA-Public Use
  Company Number: None

PATIENT
  Age: 65 Year
  Sex: Male
  Weight: 104.3273 kg

DRUGS (7)
  1. EVISTA [Suspect]
     Indication: OSTEOPENIA
     Dosage: 60 MG ? DAILY W/WATER
     Dates: start: 20070601, end: 20080702
  2. ACTOS [Concomitant]
  3. GLIPIZIDE [Concomitant]
  4. ALAPRAZOLAM [Concomitant]
  5. CITALPRAZOLAM [Concomitant]
  6. PREVACID [Concomitant]
  7. LISINOPRIL HTZ [Concomitant]

REACTIONS (1)
  - DEEP VEIN THROMBOSIS [None]
